FAERS Safety Report 14541761 (Version 2)
Quarter: 2018Q1

REPORT INFORMATION
  Report Type: Spontaneous
  Country: HK (occurrence: HK)
  Receive Date: 20180216
  Receipt Date: 20180223
  Transmission Date: 20180509
  Serious: Yes (Hospitalization, Other)
  Sender: FDA-Public Use
  Company Number: HK-ASTRAZENECA-2018SE19451

PATIENT
  Age: 66 Year
  Sex: Male

DRUGS (1)
  1. BRILINTA [Suspect]
     Active Substance: TICAGRELOR
     Route: 048
     Dates: end: 20180213

REACTIONS (2)
  - Pulmonary haemorrhage [Unknown]
  - Interstitial lung disease [Unknown]
